FAERS Safety Report 8854714 (Version 2)
Quarter: 2014Q2

REPORT INFORMATION
  Report Type: Spontaneous
  Country: US (occurrence: US)
  Receive Date: 20121023
  Receipt Date: 20131024
  Transmission Date: 20141212
  Serious: Yes (Hospitalization, Other)
  Sender: FDA-Public Use
  Company Number: US-PFIZER INC-HQWYE689611OCT04

PATIENT
  Age: 73 Year
  Sex: Female

DRUGS (5)
  1. PREMPRO [Suspect]
     Indication: HORMONE REPLACEMENT THERAPY
     Dosage: UNK
  2. PREMARIN [Suspect]
     Indication: HORMONE REPLACEMENT THERAPY
     Dosage: UNK
     Dates: start: 1998, end: 1998
  3. PREMARIN [Suspect]
     Dosage: UNK
     Route: 048
     Dates: start: 2000, end: 2001
  4. MEDROXYPROGESTERONE ACETATE [Suspect]
     Indication: HORMONE REPLACEMENT THERAPY
     Dosage: UNK
     Dates: start: 1998, end: 1998
  5. MEDROXYPROGESTERONE ACETATE [Suspect]
     Dosage: UNK
     Dates: start: 2000, end: 2001

REACTIONS (1)
  - Breast cancer female [Unknown]
